FAERS Safety Report 22017487 (Version 1)
Quarter: 2023Q1

REPORT INFORMATION
  Report Type: Spontaneous
  Country: US (occurrence: None)
  Receive Date: 20230217
  Receipt Date: 20230217
  Transmission Date: 20230417
  Serious: No
  Sender: FDA-Public Use
  Company Number: None

PATIENT
  Age: 63 Year
  Sex: Female
  Weight: 82.1 kg

DRUGS (12)
  1. IBRANCE [Suspect]
     Active Substance: PALBOCICLIB
     Indication: Breast cancer female
     Dosage: OTHER FREQUENCY : 3W,1WOFF;?
     Route: 048
  2. ATORVASTATIN CALCIUM [Concomitant]
  3. DEXAMETHASONE [Concomitant]
  4. FASLODEX INTRAMUSCULAR [Concomitant]
  5. ASPIRIN [Concomitant]
  6. LISINOPRIL-HYDROCHLOROTHIAZIDE [Concomitant]
  7. METOPROLOL TARTRATE [Concomitant]
  8. MORPHINE SULFATE [Concomitant]
  9. NARCAN [Concomitant]
  10. NITROGLYCERIN SUBLINGUAL [Concomitant]
  11. ONDANSETRON [Concomitant]
  12. PROCHLORPERAZINE [Concomitant]

REACTIONS (2)
  - Breast cancer female [None]
  - Malignant neoplasm progression [None]
